FAERS Safety Report 9569246 (Version 1)
Quarter: 2013Q3

REPORT INFORMATION
  Report Type: Spontaneous
  Country: US (occurrence: US)
  Receive Date: 20130930
  Receipt Date: 20130930
  Transmission Date: 20140515
  Serious: No
  Sender: FDA-Public Use
  Company Number: US-AMGEN-USASP2013058234

PATIENT
  Age: 60 Year
  Sex: Female
  Weight: 108.84 kg

DRUGS (5)
  1. ENBREL [Suspect]
     Indication: PRODUCT USED FOR UNKNOWN INDICATION
     Dosage: 50 MG, QWK
     Route: 058
  2. CELEBREX [Concomitant]
     Dosage: UNK
  3. HYDROCHLOROTH [Concomitant]
     Dosage: 12.5 MG, UNK
  4. METHOTREXATE [Concomitant]
     Dosage: 50 MG/ 2ML, UNK
  5. OMEGA-3                            /01866101/ [Concomitant]
     Dosage: UNK

REACTIONS (2)
  - Injection site erythema [Unknown]
  - Injection site pruritus [Unknown]
